FAERS Safety Report 14700867 (Version 1)
Quarter: 2018Q1

REPORT INFORMATION
  Report Type: Spontaneous
  Country: US (occurrence: US)
  Receive Date: 20180330
  Receipt Date: 20180330
  Transmission Date: 20180509
  Serious: Yes (Other)
  Sender: FDA-Public Use
  Company Number: US-TARO-2018TAR00242

PATIENT
  Age: 53 Year
  Sex: Female
  Weight: 131.52 kg

DRUGS (14)
  1. NYSTATIN SUSPENSION [Concomitant]
     Active Substance: NYSTATIN
  2. POTASSIUM CHLORIDE. [Concomitant]
     Active Substance: POTASSIUM CHLORIDE
  3. ALBUTEROL. [Concomitant]
     Active Substance: ALBUTEROL
  4. METHYLPREDNISOLONE. [Concomitant]
     Active Substance: METHYLPREDNISOLONE
  5. INSULIN [Concomitant]
     Active Substance: INSULIN NOS
  6. AMITRIPTYLINE [Concomitant]
     Active Substance: AMITRIPTYLINE
  7. NYSTATIN CREAM USP 100,000 UNITS/G [Suspect]
     Active Substance: NYSTATIN
     Indication: FUNGAL SKIN INFECTION
     Dosage: ^MEDIUM AMOUNT,^ TWICE
     Route: 061
     Dates: start: 20180228, end: 20180315
  8. LISINOPRIL AND HYDROCHLOROTHIAZIDE [Concomitant]
     Active Substance: HYDROCHLOROTHIAZIDE\LISINOPRIL
  9. ACTEMRA [Concomitant]
     Active Substance: TOCILIZUMAB
  10. FLOVENT [Concomitant]
     Active Substance: FLUTICASONE PROPIONATE
  11. EXALGO [Concomitant]
     Active Substance: HYDROMORPHONE HYDROCHLORIDE
  12. FUROSEMIDE. [Concomitant]
     Active Substance: FUROSEMIDE
  13. GABAPENTIN. [Concomitant]
     Active Substance: GABAPENTIN
  14. SINGULAIR [Concomitant]
     Active Substance: MONTELUKAST SODIUM

REACTIONS (3)
  - Asthma [Recovered/Resolved]
  - Product quality issue [Recovered/Resolved]
  - Product substitution issue [Recovered/Resolved]

NARRATIVE: CASE EVENT DATE: 20180228
